FAERS Safety Report 7444151-6 (Version None)
Quarter: 2011Q2

REPORT INFORMATION
  Report Type: 
  Country: None (occurrence: None)
  Receive Date: 20110428
  Receipt Date: 20110428
  Transmission Date: 20111010
  Serious: No
  Sender: FDA-Public Use
  Company Number: None

PATIENT
  Age: 58 Year
  Sex: Female
  Weight: 72.5755 kg

DRUGS (1)
  1. SKIN PREP PAD (SMITH + NEPHEW) (SMITH + NEPHEW) [Suspect]
     Dosage: TOPICALLY
     Route: 061

REACTIONS (5)
  - PYREXIA [None]
  - APPLICATION SITE REACTION [None]
  - FATIGUE [None]
  - DYSPNOEA [None]
  - INJECTION SITE WARMTH [None]
